FAERS Safety Report 7306043-2 (Version None)
Quarter: 2011Q1

REPORT INFORMATION
  Report Type: 
  Country: None (occurrence: None)
  Receive Date: 20110222
  Receipt Date: 20110216
  Transmission Date: 20110831
  Serious: Yes (Other)
  Sender: FDA-Public Use
  Company Number: US-PFIZER INC-2011034992

PATIENT
  Sex: Male
  Weight: 59.864 kg

DRUGS (21)
  1. MEPRON [Concomitant]
     Dosage: UNK
  2. POSACONAZOLE [Concomitant]
     Dosage: UNK
  3. MONTELUKAST [Concomitant]
     Dosage: UNK
  4. CELEXA [Suspect]
     Indication: DEPRESSION
     Dosage: 40 MG, 2X/DAY
     Route: 048
     Dates: start: 20100201, end: 20110211
  5. LEVAQUIN [Concomitant]
     Dosage: UNK
  6. MULTI-VITAMINS [Concomitant]
     Dosage: UNK
  7. CELLCEPT [Concomitant]
     Dosage: UNK
  8. POTASSIUM CHLORIDE [Concomitant]
     Dosage: UNK
  9. IMMUNOGLOBULINS [Concomitant]
     Dosage: UNK, MONTHLY
     Route: 042
  10. DEPO-TESTOSTERONE [Concomitant]
     Dosage: UNK
  11. FOLIC ACID [Concomitant]
     Dosage: UNK
  12. LABETALOL [Concomitant]
     Dosage: UNK
  13. PROTONIX [Concomitant]
     Dosage: UNK
  14. SYNTHROID [Concomitant]
     Dosage: UNK
  15. VALTREX [Concomitant]
     Dosage: UNK
  16. ZYVOX [Suspect]
     Indication: NOCARDIOSIS
     Dosage: 600 MG, 2X/DAY
     Route: 048
     Dates: start: 20110213
  17. MINOCYCLINE [Concomitant]
     Indication: NOCARDIOSIS
     Dosage: UNK
  18. HUMALOG [Concomitant]
     Dosage: UNK
  19. MARINOL [Concomitant]
     Dosage: UNK
  20. PREDNISONE [Concomitant]
     Dosage: UNK
  21. VITAMIN B6 [Concomitant]
     Dosage: UNK

REACTIONS (5)
  - ANAEMIA [None]
  - DIPLOPIA [None]
  - VISION BLURRED [None]
  - MYDRIASIS [None]
  - HEARING IMPAIRED [None]
